FAERS Safety Report 13763509 (Version 3)
Quarter: 2017Q3

REPORT INFORMATION
  Report Type: Spontaneous
  Country: JP (occurrence: JP)
  Receive Date: 20170718
  Receipt Date: 20170801
  Transmission Date: 20171127
  Serious: Yes (Other)
  Sender: FDA-Public Use
  Company Number: JP-GLAXOSMITHKLINE-JP2017JPN107186

PATIENT
  Sex: Male

DRUGS (1)
  1. AVOLVE [Suspect]
     Active Substance: DUTASTERIDE
     Dosage: UNK
     Route: 048

REACTIONS (3)
  - Pharyngeal inflammation [Unknown]
  - Dysphagia [Unknown]
  - Pneumonia aspiration [Unknown]
